FAERS Safety Report 6091009-3 (Version None)
Quarter: 2009Q1

REPORT INFORMATION
  Report Type: 
  Country: None (occurrence: None)
  Receive Date: 20090225
  Receipt Date: 20090213
  Transmission Date: 20090719
  Serious: Yes (Other)
  Sender: FDA-Public Use
  Company Number: US-BAYER-200839475NA

PATIENT
  Age: 32 Year
  Sex: Female

DRUGS (3)
  1. BETASERON [Suspect]
     Indication: MULTIPLE SCLEROSIS
     Dosage: TOTAL DAILY DOSE: 2 MIU
     Route: 058
     Dates: start: 20081122
  2. RELAFEN [Concomitant]
     Indication: MIGRAINE
  3. MS CONTIN [Concomitant]
     Indication: MIGRAINE

REACTIONS (2)
  - MIGRAINE [None]
  - SOMNOLENCE [None]
